FAERS Safety Report 8608016-6 (Version None)
Quarter: 2012Q3

REPORT INFORMATION
  Report Type: 
  Country: None (occurrence: None)
  Receive Date: 20120809
  Receipt Date: 20120809
  Transmission Date: 20120928
  Serious: Yes (Death)
  Sender: FDA-Public Use
  Company Number: None

PATIENT
  Age: 63 Year
  Sex: Female
  Weight: 57 kg

DRUGS (10)
  1. ERLOTINIB 150MG, 100MG GENENTECH [Suspect]
     Indication: LUNG NEOPLASM MALIGNANT
     Dosage: 150MG DAILY PO 100MG DAILY PO
     Route: 048
     Dates: start: 20120609, end: 20120702
  2. ERLOTINIB 150MG, 100MG GENENTECH [Suspect]
     Indication: LUNG NEOPLASM MALIGNANT
     Dosage: 150MG DAILY PO 100MG DAILY PO
     Route: 048
     Dates: start: 20120703, end: 20120716
  3. CLINDMYCIN 1% TOPICAL LOTION APPLIED BID [Concomitant]
  4. ONDANSETRON4MG PO Q 6 H PRN [Concomitant]
  5. CALCIUM CARBONATE 1250MG PO DAILY [Concomitant]
  6. MULTIVITAMIN WITH MINERALS PO DAILY [Concomitant]
  7. LORAZEPAM 0.5MG PO Q 4H PRN (CHANGED TO ALPRAZOLAM) [Concomitant]
  8. ESCITALOPRAM [Concomitant]
  9. OMEGA 3 POLYUNSATURATED FATTY ACIDS 100MG; 3 CAPS PO DAILY [Concomitant]
  10. MINOCYCLINE HCL [Concomitant]

REACTIONS (11)
  - ANXIETY [None]
  - DEPRESSION [None]
  - DECREASED APPETITE [None]
  - QUALITY OF LIFE DECREASED [None]
  - MUCOSAL INFLAMMATION [None]
  - NAUSEA [None]
  - DIZZINESS POSTURAL [None]
  - ASTHENIA [None]
  - RASH [None]
  - DIARRHOEA [None]
  - COMPLETED SUICIDE [None]
